FAERS Safety Report 20100377 (Version 1)
Quarter: 2021Q4

REPORT INFORMATION
  Report Type: Spontaneous
  Country: US (occurrence: None)
  Receive Date: 20211123
  Receipt Date: 20211123
  Transmission Date: 20220303
  Serious: Yes (Other)
  Sender: FDA-Public Use
  Company Number: US-Hikma Pharmaceuticals USA Inc.-US-H14001-21-04985

PATIENT
  Age: 43 Year
  Sex: Female

DRUGS (3)
  1. ARGATROBAN [Suspect]
     Active Substance: ARGATROBAN
     Indication: Anticoagulant therapy
     Dosage: 2.5-3.5 MCG/KG/H
     Route: 065
  2. ARGATROBAN [Suspect]
     Active Substance: ARGATROBAN
     Dosage: 2-15 MCG/KG/H
     Route: 065
  3. FILGRASTIM [Concomitant]
     Active Substance: FILGRASTIM
     Indication: Stem cell transplant
     Dosage: UNKNOWN
     Route: 065

REACTIONS (1)
  - Ischaemic hepatitis [Recovering/Resolving]
